FAERS Safety Report 7699025-2 (Version None)
Quarter: 2011Q3

REPORT INFORMATION
  Report Type: 
  Country: None (occurrence: None)
  Receive Date: 20110819
  Receipt Date: 20110812
  Transmission Date: 20111222
  Serious: Yes (Other)
  Sender: FDA-Public Use
  Company Number: US-ROCHE-778842

PATIENT
  Sex: Male
  Weight: 68 kg

DRUGS (2)
  1. ACCUTANE [Suspect]
     Indication: ACNE
     Route: 065
     Dates: start: 20030301, end: 20030901
  2. ACCUTANE [Suspect]
     Route: 065
     Dates: start: 20040101, end: 20041001

REACTIONS (5)
  - IRRITABLE BOWEL SYNDROME [None]
  - INFLAMMATORY BOWEL DISEASE [None]
  - DEPRESSED MOOD [None]
  - COLITIS ULCERATIVE [None]
  - DIVERTICULITIS [None]
